FAERS Safety Report 17112330 (Version 1)
Quarter: 2019Q4

REPORT INFORMATION
  Report Type: Spontaneous
  Country: PL (occurrence: PL)
  Receive Date: 20191204
  Receipt Date: 20191204
  Transmission Date: 20200122
  Serious: Yes (Other)
  Sender: FDA-Public Use
  Company Number: PL-SEATTLE GENETICS-2019SGN04412

PATIENT
  Age: 41 Year
  Sex: Female
  Weight: 130 kg

DRUGS (1)
  1. ADCETRIS [Suspect]
     Active Substance: BRENTUXIMAB VEDOTIN
     Indication: HODGKIN^S DISEASE
     Dosage: 180 MILLIGRAM
     Route: 042
     Dates: start: 20191028, end: 20191028

REACTIONS (2)
  - Hepatic failure [Recovering/Resolving]
  - Gastrointestinal disorder [Recovering/Resolving]
